FAERS Safety Report 7699075-6 (Version None)
Quarter: 2011Q3

REPORT INFORMATION
  Report Type: 
  Country: None (occurrence: None)
  Receive Date: 20110819
  Receipt Date: 20110809
  Transmission Date: 20111222
  Serious: Yes (Hospitalization)
  Sender: FDA-Public Use
  Company Number: US-ELI_LILLY_AND_COMPANY-US201108003256

PATIENT
  Age: 60 Year
  Sex: Female

DRUGS (3)
  1. BYETTA [Suspect]
     Dosage: 10 UG, BID
     Route: 058
  2. BYETTA [Suspect]
     Dosage: 5 UG, BID
     Route: 058
  3. BYETTA [Suspect]
     Indication: TYPE 2 DIABETES MELLITUS
     Dosage: 5 UG, BID
     Route: 058

REACTIONS (5)
  - CONVULSION [None]
  - WEIGHT DECREASED [None]
  - VISUAL ACUITY REDUCED [None]
  - FALL [None]
  - NAUSEA [None]
